FAERS Safety Report 15658702 (Version 4)
Quarter: 2018Q4

REPORT INFORMATION
  Report Type: Spontaneous
  Country: BR (occurrence: BR)
  Receive Date: 20181126
  Receipt Date: 20181221
  Transmission Date: 20190205
  Serious: Yes (Death, Hospitalization, Other)
  Sender: FDA-Public Use
  Company Number: BR-ALEXION PHARMACEUTICALS INC.-A201815493

PATIENT
  Age: 32 Year
  Sex: Female

DRUGS (6)
  1. SOLIRIS [Suspect]
     Active Substance: ECULIZUMAB
     Dosage: 900 MG, QW FOR 4 WEEKS
     Route: 065
  2. SOLIRIS [Suspect]
     Active Substance: ECULIZUMAB
     Dosage: UNK
     Route: 065
  3. SOLIRIS [Suspect]
     Active Substance: ECULIZUMAB
     Dosage: 600 MG, Q2W
     Route: 042
  4. SOLIRIS [Suspect]
     Active Substance: ECULIZUMAB
     Indication: PAROXYSMAL NOCTURNAL HAEMOGLOBINURIA
     Dosage: UNK
     Route: 042
  5. SOLIRIS [Suspect]
     Active Substance: ECULIZUMAB
     Dosage: 600 MG, QW
     Route: 042
     Dates: start: 20140630, end: 20140722
  6. SOLIRIS [Suspect]
     Active Substance: ECULIZUMAB
     Dosage: 900 MG, Q2W
     Route: 042
     Dates: start: 20140728

REACTIONS (10)
  - Aplastic anaemia [Fatal]
  - Phlebitis [Fatal]
  - Hypovolaemic shock [Fatal]
  - Thrombocytopenia [Fatal]
  - Vaginal haemorrhage [Fatal]
  - Aplasia [Fatal]
  - Cellulitis [Fatal]
  - Incorrect dose administered [Fatal]
  - Haemorrhage [Fatal]
  - Inappropriate schedule of product administration [Fatal]

NARRATIVE: CASE EVENT DATE: 2018
